FAERS Safety Report 7775816-4 (Version None)
Quarter: 2011Q3

REPORT INFORMATION
  Report Type: 
  Country: None (occurrence: None)
  Receive Date: 20110923
  Receipt Date: 20110921
  Transmission Date: 20111222
  Serious: Yes (Death, Other)
  Sender: FDA-Public Use
  Company Number: PHHY2011BR83598

PATIENT
  Sex: Female

DRUGS (5)
  1. SOMALGIN [Concomitant]
     Indication: HYPERTENSION
     Dosage: UNK UKN, UNK
  2. CALCIUM CARBONATE [Concomitant]
     Indication: BONE DISORDER
  3. EVISTA [Concomitant]
     Indication: BONE DISORDER
     Dosage: UNK UKN, UNK
  4. EXELON [Suspect]
     Dosage: 18MG/10CM2, UNK
     Route: 062
  5. EXELON [Suspect]
     Indication: DEMENTIA ALZHEIMER'S TYPE
     Dosage: UNK UKN, UNK
     Route: 048

REACTIONS (1)
  - MULTI-ORGAN FAILURE [None]
